FAERS Safety Report 17868938 (Version 1)
Quarter: 2020Q2

REPORT INFORMATION
  Report Type: Spontaneous
  Country: DE (occurrence: DE)
  Receive Date: 20200607
  Receipt Date: 20200607
  Transmission Date: 20200714
  Serious: Yes (Other)
  Sender: FDA-Public Use
  Company Number: DE-ROCHE-2616212

PATIENT
  Sex: Male

DRUGS (1)
  1. OCREVUS [Suspect]
     Active Substance: OCRELIZUMAB
     Indication: PRODUCT USED FOR UNKNOWN INDICATION
     Dosage: THEN 600 MG EVERY 6 MONTHS
     Route: 042

REACTIONS (1)
  - Pancytopenia [Unknown]
